FAERS Safety Report 14101828 (Version 1)
Quarter: 2017Q4

REPORT INFORMATION
  Report Type: Spontaneous
  Country: US (occurrence: US)
  Receive Date: 20171018
  Receipt Date: 20171018
  Transmission Date: 20180321
  Serious: Yes (Hospitalization)
  Sender: FDA-Public Use
  Company Number: None

PATIENT
  Age: 49 Year
  Sex: Female
  Weight: 101 kg

DRUGS (1)
  1. ABATACEPT [Suspect]
     Active Substance: ABATACEPT

REACTIONS (5)
  - CSF test abnormal [None]
  - Haemorrhage [None]
  - Subarachnoid haemorrhage [None]
  - Reversible cerebral vasoconstriction syndrome [None]
  - Headache [None]

NARRATIVE: CASE EVENT DATE: 20171013
